FAERS Safety Report 9340448 (Version 1)
Quarter: 2013Q2

REPORT INFORMATION
  Report Type: Spontaneous
  Country: US (occurrence: US)
  Receive Date: 20130610
  Receipt Date: 20130610
  Transmission Date: 20140414
  Serious: Yes (Other)
  Sender: FDA-Public Use
  Company Number: US-PFIZER INC-2013172703

PATIENT
  Age: 36 Year
  Sex: Male
  Weight: 111 kg

DRUGS (1)
  1. VIAGRA [Suspect]
     Indication: ERECTILE DYSFUNCTION
     Dosage: 100 MG, UNK
     Route: 048

REACTIONS (5)
  - Staphylococcal infection [Unknown]
  - Flushing [Unknown]
  - Decreased appetite [Unknown]
  - Drug ineffective [Unknown]
  - Incorrect dose administered [Unknown]
